FAERS Safety Report 11230810 (Version 1)
Quarter: 2015Q3

REPORT INFORMATION
  Report Type: Report from Study
  Country: GB (occurrence: GB)
  Receive Date: 20150701
  Receipt Date: 20150701
  Transmission Date: 20151125
  Serious: Yes (Hospitalization, Other)
  Sender: FDA-Public Use
  Company Number: PHFR2015GB004708

PATIENT
  Sex: Male

DRUGS (1)
  1. GILENYA [Suspect]
     Active Substance: FINGOLIMOD HYDROCHLORIDE
     Indication: MULTIPLE SCLEROSIS
     Dosage: 0.5 MG, QD
     Route: 065
     Dates: start: 20130220

REACTIONS (20)
  - Nocturia [Unknown]
  - Hypertension [Unknown]
  - Visual impairment [Unknown]
  - Musculoskeletal stiffness [Unknown]
  - Lymphocyte count decreased [Unknown]
  - Urinary tract infection [Unknown]
  - Optic atrophy [Unknown]
  - Urinary hesitation [Unknown]
  - Dysphagia [Unknown]
  - Visual field defect [Unknown]
  - Eye disorder [Unknown]
  - Multiple sclerosis relapse [Unknown]
  - Gait disturbance [Unknown]
  - Ophthalmoplegia [Unknown]
  - Fatigue [Unknown]
  - Liver function test abnormal [Unknown]
  - Vision blurred [Unknown]
  - Hypoaesthesia oral [Unknown]
  - Muscular weakness [Unknown]
  - Tooth infection [Unknown]
